FAERS Safety Report 17235741 (Version 1)
Quarter: 2020Q1

REPORT INFORMATION
  Report Type: Spontaneous
  Country: CN (occurrence: CN)
  Receive Date: 20200106
  Receipt Date: 20200106
  Transmission Date: 20200409
  Serious: Yes (Other)
  Sender: FDA-Public Use
  Company Number: CN-BAXTER-2019BAX026814

PATIENT
  Age: 52 Year
  Sex: Male
  Weight: 60 kg

DRUGS (9)
  1. 20% MANNITOL INJECTION [Suspect]
     Active Substance: MANNITOL
     Indication: INTRACRANIAL PRESSURE INCREASED
     Dosage: Q6H
     Route: 041
     Dates: start: 20191205, end: 20191208
  2. 20% MANNITOL INJECTION [Suspect]
     Active Substance: MANNITOL
     Dosage: Q12H
     Route: 041
     Dates: start: 20191216, end: 20191218
  3. FENGKESONG [Suspect]
     Active Substance: AMPHOTERICIN B
     Route: 041
     Dates: start: 20191207, end: 20191207
  4. FENGKESONG [Suspect]
     Active Substance: AMPHOTERICIN B
     Route: 041
     Dates: start: 20191208, end: 20191208
  5. GLUCOSE [Suspect]
     Active Substance: DEXTROSE
     Indication: MEDICATION DILUTION
     Dosage: AMPHOTERICIN B LIPOSOME FOR INJECTION + DEXAMETHASONE SODIUM PHOSPHATE INJECTION + 5% GLUCOSE INJECT
     Route: 041
     Dates: start: 20191206, end: 20191218
  6. 20% MANNITOL INJECTION [Suspect]
     Active Substance: MANNITOL
     Dosage: Q8H
     Route: 041
     Dates: start: 20191209, end: 20191215
  7. FENGKESONG [Suspect]
     Active Substance: AMPHOTERICIN B
     Indication: MENINGITIS CRYPTOCOCCAL
     Route: 041
     Dates: start: 20191206, end: 20191206
  8. FENGKESONG [Suspect]
     Active Substance: AMPHOTERICIN B
     Route: 041
     Dates: start: 20191209, end: 20191218
  9. DEXAMETHASONE SODIUM PHOSPHATE. [Suspect]
     Active Substance: DEXAMETHASONE SODIUM PHOSPHATE
     Indication: PROPHYLAXIS
     Dosage: AMPHOTERICIN B LIPOSOME FOR INJECTION + DEXAMETHASONE SODIUM PHOSPHATE INJECTION + 5% GLUCOSE INJECT
     Route: 041
     Dates: start: 20191206, end: 20191218

REACTIONS (1)
  - Renal impairment [Unknown]

NARRATIVE: CASE EVENT DATE: 20191218
